FAERS Safety Report 19728295 (Version 1)
Quarter: 2021Q3

REPORT INFORMATION
  Report Type: Spontaneous
  Country: DE (occurrence: DE)
  Receive Date: 20210820
  Receipt Date: 20210820
  Transmission Date: 20211014
  Serious: Yes (Life-Threatening, Other)
  Sender: FDA-Public Use
  Company Number: DE-AUROBINDO-AUR-APL-2011-06035

PATIENT
  Sex: Male
  Weight: 110 kg

DRUGS (4)
  1. EZETROL [Suspect]
     Active Substance: EZETIMIBE
     Indication: LIPID METABOLISM DISORDER
     Dosage: 10 MILLIGRAM
     Route: 048
     Dates: start: 20110120, end: 20110908
  2. SIMVASTATIN PUREN FILM?COATED TABLETS 20MG [Suspect]
     Active Substance: SIMVASTATIN
     Indication: LIPID METABOLISM DISORDER
     Dosage: 20 MILLIGRAM
     Route: 048
     Dates: start: 20100821, end: 20101015
  3. LOCOL [FLUVASTATIN SODIUM] [Suspect]
     Active Substance: FLUVASTATIN SODIUM
     Indication: LIPID METABOLISM DISORDER
     Dosage: 20 MILLIGRAM
     Route: 048
     Dates: start: 20101015, end: 20101103
  4. PRAVASTATIN. [Suspect]
     Active Substance: PRAVASTATIN
     Indication: LIPID METABOLISM DISORDER
     Dosage: UNK
     Route: 048
     Dates: start: 20101006, end: 20101008

REACTIONS (6)
  - Acute kidney injury [Not Recovered/Not Resolved]
  - Blood creatine phosphokinase increased [Not Recovered/Not Resolved]
  - Gait inability [Not Recovered/Not Resolved]
  - Myoglobin urine [Not Recovered/Not Resolved]
  - Myalgia [Not Recovered/Not Resolved]
  - Rhabdomyolysis [Not Recovered/Not Resolved]
